FAERS Safety Report 11822763 (Version 1)
Quarter: 2015Q4

REPORT INFORMATION
  Report Type: Spontaneous
  Country: US (occurrence: US)
  Receive Date: 20151210
  Receipt Date: 20151210
  Transmission Date: 20160305
  Serious: No
  Sender: FDA-Public Use
  Company Number: US-BRISTOL-MYERS SQUIBB COMPANY-BMS-2015-080846

PATIENT
  Sex: Male

DRUGS (2)
  1. OPDIVO [Suspect]
     Active Substance: NIVOLUMAB
     Indication: SMALL CELL LUNG CANCER
     Dosage: 100 MG, UNK
     Route: 065
     Dates: start: 20151026
  2. YERVOY [Suspect]
     Active Substance: IPILIMUMAB
     Indication: SMALL CELL LUNG CANCER
     Dosage: 100 MG, UNK
     Route: 065
     Dates: start: 20151026

REACTIONS (4)
  - Blood creatinine decreased [Unknown]
  - Blood lactate dehydrogenase decreased [Unknown]
  - Arthralgia [Unknown]
  - Blood uric acid increased [Unknown]
